FAERS Safety Report 7118832-8 (Version None)
Quarter: 2010Q4

REPORT INFORMATION
  Report Type: 
  Country: None (occurrence: None)
  Receive Date: 20101123
  Receipt Date: 20100928
  Transmission Date: 20110411
  Serious: No
  Sender: FDA-Public Use
  Company Number: US-KINGPHARMUSA00001-K201001221

PATIENT
  Age: 55 Year
  Sex: Female
  Weight: 77.098 kg

DRUGS (5)
  1. FLECTOR [Suspect]
     Indication: SWELLING
     Dosage: 1 PATCH, SINGLE
     Route: 061
     Dates: start: 20100901, end: 20100901
  2. FLECTOR [Suspect]
     Dosage: 1 PATCH, Q 12 HOURS
     Route: 061
     Dates: start: 20100927, end: 20100928
  3. PERCOCET [Concomitant]
     Dosage: 10 MG, UNK
     Route: 048
     Dates: start: 20030101
  4. ZOCOR [Concomitant]
     Route: 048
  5. ASA [Concomitant]
     Route: 048

REACTIONS (6)
  - ACTIVITIES OF DAILY LIVING IMPAIRED [None]
  - ANXIETY [None]
  - DIZZINESS [None]
  - FEELING ABNORMAL [None]
  - HEADACHE [None]
  - SOMNOLENCE [None]
